FAERS Safety Report 9000052 (Version 1)
Quarter: 2013Q1

REPORT INFORMATION
  Report Type: Spontaneous
  Country: JP (occurrence: JP)
  Receive Date: 20130102
  Receipt Date: 20130102
  Transmission Date: 20140127
  Serious: Yes (Other)
  Sender: FDA-Public Use
  Company Number: JP-PFIZER INC-2012307999

PATIENT
  Age: 53 Year
  Sex: Female
  Weight: 45 kg

DRUGS (12)
  1. CAMPTO [Suspect]
     Indication: RECTAL CANCER
     Dosage: 200 MG, 1X/DAY
     Route: 041
     Dates: start: 20121107, end: 20121107
  2. ELPLAT [Suspect]
     Indication: RECTAL CANCER
     Dosage: 110 MG, 1X/DAY
     Route: 041
     Dates: start: 20120910, end: 20120910
  3. ELPLAT [Suspect]
     Dosage: 110 MG, 1X/DAY
     Route: 041
     Dates: start: 20120910, end: 20120910
  4. ELPLAT [Suspect]
     Dosage: 160 MG, 1X/DAY
     Route: 041
     Dates: start: 20120924, end: 20120924
  5. ELPLAT [Suspect]
     Dosage: 160 MG, 1X/DAY
     Route: 041
     Dates: start: 20121017, end: 20121017
  6. ISOVORIN (LEVOFOLINATE CALCIUM) [Concomitant]
     Dosage: 179.9 MG/M2, UNK
     Dates: start: 20120910, end: 20121107
  7. ALOXI [Concomitant]
     Dosage: UNK
     Dates: start: 20121107, end: 20121107
  8. DECADRON [Concomitant]
     Dosage: UNK
     Dates: start: 20121107, end: 20121107
  9. GASTER [Concomitant]
     Dosage: UNK
     Dates: start: 20121107, end: 20121107
  10. 5-FU [Concomitant]
     Dosage: 500 MG/BODY (359.7MG/M2)
     Route: 040
     Dates: start: 20120910, end: 20120910
  11. 5-FU [Concomitant]
     Dosage: 3000 MG/BODY/D1-2 (2158.3 MG/M2/D1-2)
     Route: 042
     Dates: start: 20120910, end: 20120910
  12. XELODA [Concomitant]
     Dosage: UNK
     Dates: start: 20120924, end: 20121101

REACTIONS (2)
  - Drug hypersensitivity [Recovered/Resolved]
  - Rhabdomyolysis [Recovering/Resolving]
